FAERS Safety Report 23298340 (Version 1)
Quarter: 2023Q4

REPORT INFORMATION
  Report Type: Spontaneous
  Country: US (occurrence: US)
  Receive Date: 20231214
  Receipt Date: 20231214
  Transmission Date: 20240110
  Serious: No
  Sender: FDA-Public Use
  Company Number: US-SANDOZ-SDZ2023US067503

PATIENT
  Sex: Female

DRUGS (1)
  1. ALBUTEROL SULFATE [Suspect]
     Active Substance: ALBUTEROL SULFATE
     Indication: Asthma
     Dosage: UNK
     Route: 055

REACTIONS (5)
  - Off label use [Unknown]
  - Product dose omission issue [Unknown]
  - Drug ineffective [Unknown]
  - Dyspnoea [Unknown]
  - Stress [Unknown]
